FAERS Safety Report 4694465-8 (Version None)
Quarter: 2005Q2

REPORT INFORMATION
  Report Type: 
  Country: None (occurrence: None)
  Receive Date: 20050620
  Receipt Date: 20050224
  Transmission Date: 20051028
  Serious: Yes (Hospitalization, Disabling)
  Sender: FDA-Public Use
  Company Number: US-ROCHE-396715

PATIENT
  Age: 15 Year
  Sex: Male
  Weight: 125 kg

DRUGS (28)
  1. ACCUTANE [Suspect]
     Route: 048
     Dates: start: 19970120, end: 19970128
  2. ACCUTANE [Suspect]
     Route: 048
     Dates: start: 19970201, end: 19970520
  3. ACCUTANE [Suspect]
     Dosage: TAKEN ON MONDAYS AND THURSDAYS.
     Route: 048
     Dates: start: 19970520
  4. ACCUTANE [Suspect]
     Dosage: DOSE CHANGED ON UNKNOWN DATE
     Route: 048
     Dates: end: 19970708
  5. ACCUTANE [Suspect]
     Route: 048
     Dates: start: 19970708, end: 19970712
  6. ACCUTANE [Suspect]
     Route: 048
     Dates: start: 19970909
  7. ACCUTANE [Suspect]
     Dosage: DOSE CHANGED ON UNKNOWN DATE
     Route: 048
     Dates: end: 19971118
  8. ACCUTANE [Suspect]
     Route: 048
     Dates: start: 19971121, end: 19971217
  9. ACCUTANE [Suspect]
     Dosage: MONDAYS AND FRIDAYS TAKES 80MG ONCE DAILY, REST OF WEEK ON 40MG ONCE DAILY.
     Route: 048
     Dates: start: 19971217, end: 19980212
  10. ACCUTANE [Suspect]
     Dosage: STOPPED IN MAY OR JUNE
     Route: 048
     Dates: start: 19980212, end: 19980615
  11. ACCUTANE [Suspect]
     Route: 048
     Dates: start: 19981113, end: 19981221
  12. ACCUTANE [Suspect]
     Route: 048
     Dates: start: 19981221, end: 19990304
  13. ACCUTANE [Suspect]
     Route: 048
     Dates: start: 19990304, end: 19990515
  14. ACCUTANE [Suspect]
     Route: 048
     Dates: start: 19990811, end: 19990921
  15. ACCUTANE [Suspect]
     Route: 048
     Dates: start: 19990921
  16. ACCUTANE [Suspect]
     Dosage: DOSE CHANGED ON UNKNOWN DATE.
     Route: 048
  17. ACCUTANE [Suspect]
     Route: 048
     Dates: start: 19991026, end: 20000204
  18. ACCUTANE [Suspect]
     Route: 048
     Dates: start: 20000204, end: 20000215
  19. AKNE-MYCIN [Concomitant]
     Dosage: APPLIED TO FACE EVERY NIGHT
     Route: 061
     Dates: start: 19970120
  20. IL-2-TAC [Concomitant]
     Dosage: APPLIED TO KELOIDS AND ACTIVE ACNE LESIONS
     Route: 061
     Dates: start: 19970120
  21. DIFFERIN [Concomitant]
     Route: 061
     Dates: start: 19970708
  22. CLEOCIN T [Concomitant]
     Dosage: APPLIED TO FACE EVERY NIGHT
     Route: 061
     Dates: start: 19970812
  23. DESQUAM-E [Concomitant]
     Dosage: APPLIED TO FACE EVERY NIGHT
     Route: 061
     Dates: start: 19970812
  24. VITAMINS NOS [Concomitant]
     Route: 048
     Dates: start: 19981113
  25. SEPTRA DS [Concomitant]
     Indication: BACTERIAL CULTURE POSITIVE
     Route: 048
     Dates: start: 19991207
  26. MINOCYCLINE HCL [Concomitant]
     Route: 048
     Dates: start: 20030303
  27. TRIAZ CLEANSER [Concomitant]
     Route: 061
     Dates: start: 20030303
  28. KLARON [Concomitant]
     Route: 061
     Dates: start: 20030303

REACTIONS (24)
  - ABDOMINAL PAIN [None]
  - ABDOMINAL PAIN LOWER [None]
  - ALANINE AMINOTRANSFERASE INCREASED [None]
  - BACK PAIN [None]
  - BLOOD ALKALINE PHOSPHATASE INCREASED [None]
  - CHOLANGITIS SCLEROSING [None]
  - COLITIS [None]
  - COLITIS ULCERATIVE [None]
  - DRY SKIN [None]
  - EAR INFECTION [None]
  - EPIPHYSES PREMATURE FUSION [None]
  - EPISTAXIS [None]
  - GASTROINTESTINAL DISORDER [None]
  - HEADACHE [None]
  - INFLAMMATORY BOWEL DISEASE [None]
  - INTESTINAL HAEMORRHAGE [None]
  - JOINT STIFFNESS [None]
  - LIP DRY [None]
  - LIVER DISORDER [None]
  - LIVER FUNCTION TEST ABNORMAL [None]
  - MULTI-ORGAN DISORDER [None]
  - PHOTOSENSITIVITY REACTION [None]
  - RECTAL HAEMORRHAGE [None]
  - STAPHYLOCOCCAL INFECTION [None]
